FAERS Safety Report 25491449 (Version 1)
Quarter: 2025Q2

REPORT INFORMATION
  Report Type: Spontaneous
  Country: US (occurrence: US)
  Receive Date: 20250629
  Receipt Date: 20250629
  Transmission Date: 20250717
  Serious: Yes (Death, Life-Threatening, Hospitalization, Other)
  Sender: BRISTOL-MYERS SQUIBB COMPANY
  Company Number: US-BRISTOL-MYERS SQUIBB COMPANY-2025-090276

PATIENT
  Age: 28 Year
  Sex: Female

DRUGS (8)
  1. OPDIVO [Suspect]
     Active Substance: NIVOLUMAB
     Indication: Malignant melanoma
     Dates: start: 20241118
  2. OPDIVO [Suspect]
     Active Substance: NIVOLUMAB
     Dates: start: 20241209
  3. OPDIVO [Suspect]
     Active Substance: NIVOLUMAB
     Dates: start: 20250217
  4. YERVOY [Suspect]
     Active Substance: IPILIMUMAB
     Indication: Malignant melanoma
     Dates: start: 20241118
  5. YERVOY [Suspect]
     Active Substance: IPILIMUMAB
     Dates: start: 20241209
  6. LIOTHYRONINE [Concomitant]
     Active Substance: LIOTHYRONINE
     Indication: Product used for unknown indication
     Route: 048
  7. LEVOTHYROXINE [Concomitant]
     Active Substance: LEVOTHYROXINE
     Indication: Product used for unknown indication
     Route: 048
  8. TOPIRAMATE [Concomitant]
     Active Substance: TOPIRAMATE
     Indication: Product used for unknown indication
     Route: 048

REACTIONS (4)
  - Acute hepatic failure [Fatal]
  - Seizure [Unknown]
  - Migraine [Unknown]
  - Renal disorder [Unknown]

NARRATIVE: CASE EVENT DATE: 20250331
